FAERS Safety Report 9181021 (Version 1)
Quarter: 2013Q1

REPORT INFORMATION
  Report Type: Spontaneous
  Country: US (occurrence: None)
  Receive Date: 20130320
  Receipt Date: 20130320
  Transmission Date: 20140127
  Serious: No
  Sender: FDA-Public Use
  Company Number: SPI201300172

PATIENT
  Age: 65 Year
  Sex: Female
  Weight: 59 kg

DRUGS (1)
  1. AMITIZA (LUBIPROSTONE) CAPSULE, 24MCG [Suspect]
     Indication: CONSTIPATION
     Route: 048
     Dates: start: 20130228, end: 20130306

REACTIONS (4)
  - Dyspnoea [None]
  - Abdominal distension [None]
  - Drug ineffective [None]
  - Constipation [None]
